FAERS Safety Report 4879601-2 (Version None)
Quarter: 2006Q1

REPORT INFORMATION
  Report Type: 
  Country: None (occurrence: None)
  Receive Date: 20060113
  Receipt Date: 20050728
  Transmission Date: 20060701
  Serious: Yes (Other)
  Sender: FDA-Public Use
  Company Number: US-BRISTOL-MYERS SQUIBB COMPANY-13056007

PATIENT
  Age: 47 Year
  Sex: Male

DRUGS (7)
  1. PLATINOL [Suspect]
     Indication: OESOPHAGEAL CARCINOMA
     Route: 042
     Dates: start: 20050617, end: 20050728
  2. CARBOPLATIN [Suspect]
     Indication: OESOPHAGEAL CARCINOMA
     Route: 042
     Dates: start: 20050707, end: 20050707
  3. TAXOTERE [Suspect]
     Indication: OESOPHAGEAL CARCINOMA
     Route: 042
     Dates: start: 20050728, end: 20050728
  4. BENADRYL [Concomitant]
     Indication: PREMEDICATION
  5. STEROIDS [Concomitant]
     Indication: PREMEDICATION
  6. BENADRYL [Concomitant]
  7. STEROIDS [Concomitant]

REACTIONS (3)
  - BRONCHOSPASM [None]
  - RASH [None]
  - URTICARIA [None]
